FAERS Safety Report 11661134 (Version 20)
Quarter: 2018Q1

REPORT INFORMATION
  Report Type: Report from Study
  Country: GB (occurrence: GB)
  Receive Date: 20151026
  Receipt Date: 20180329
  Transmission Date: 20180508
  Serious: Yes (Death, Life-Threatening, Hospitalization, Other)
  Sender: FDA-Public Use
  Company Number: PHHY2015GB108825

PATIENT
  Age: 62 Year
  Sex: Female

DRUGS (1)
  1. GILENYA [Suspect]
     Active Substance: FINGOLIMOD HYDROCHLORIDE
     Indication: SECONDARY PROGRESSIVE MULTIPLE SCLEROSIS
     Dosage: 0.5 MG, QD
     Route: 048
     Dates: start: 20140318, end: 20151005

REACTIONS (30)
  - Proctalgia [Fatal]
  - Rectal haemorrhage [Unknown]
  - Conjunctivitis [Unknown]
  - Anal haemorrhage [Fatal]
  - Multiple sclerosis [Not Recovered/Not Resolved]
  - Posterior capsule opacification [Unknown]
  - Urinary incontinence [Unknown]
  - Tremor [Unknown]
  - Pain [Unknown]
  - Dysuria [Unknown]
  - Fall [Unknown]
  - Mobility decreased [Unknown]
  - Cellulitis [Recovered/Resolved]
  - Cognitive disorder [Unknown]
  - Pollakiuria [Unknown]
  - Anal incontinence [Unknown]
  - Seasonal allergy [Unknown]
  - Muscle spasms [Unknown]
  - Anal squamous cell carcinoma [Fatal]
  - Lymphadenopathy [Fatal]
  - Cancer pain [Unknown]
  - Micturition urgency [Unknown]
  - Urinary tract infection [Unknown]
  - Lymphangitis [Recovered/Resolved]
  - Urinary tract infection [Recovered/Resolved]
  - Visual impairment [Not Recovered/Not Resolved]
  - Product use in unapproved indication [Unknown]
  - Back pain [Unknown]
  - Nausea [Unknown]
  - Haematuria [Unknown]

NARRATIVE: CASE EVENT DATE: 20140318
